FAERS Safety Report 10247191 (Version 1)
Quarter: 2014Q2

REPORT INFORMATION
  Report Type: Report from Study
  Country: US (occurrence: US)
  Receive Date: 20140619
  Receipt Date: 20140619
  Transmission Date: 20141212
  Serious: Yes (Hospitalization, Other)
  Sender: FDA-Public Use
  Company Number: PHEH2014US011878

PATIENT
  Age: 41 Year
  Sex: Female

DRUGS (19)
  1. MYFORTIC [Suspect]
     Indication: COMPLICATIONS OF TRANSPLANTED KIDNEY
     Dosage: 360 MG, BID
     Route: 048
  2. TACROLIMUS [Suspect]
     Indication: IMMUNOSUPPRESSION
     Dosage: 2 MG, BID
     Route: 048
     Dates: start: 2008
  3. ACETAMINOPHEN [Concomitant]
     Dosage: 650 MG, Q4H
  4. ACETAMINOPHEN [Concomitant]
     Dosage: 1000 MG, BID
     Route: 048
  5. CYCLOBENZAPRINE [Concomitant]
     Dosage: 10 MG, BID
     Route: 048
  6. HYDROMORPHON [Concomitant]
     Dosage: 0.4 MG, Q4H
     Route: 042
  7. LEVOTHYROXIN [Concomitant]
     Dosage: 100 UG, DAILY
     Route: 048
  8. CYTOMEL [Concomitant]
     Dosage: 5 UG, DAILY
     Route: 048
  9. ATIVAN [Concomitant]
     Dosage: 1 MG, TID
     Route: 048
  10. MULTIVIT?MIN [Concomitant]
     Dosage: 1 DF, QD
  11. PROMETHAZINE [Concomitant]
     Dosage: 25 MG, BID
     Route: 048
  12. PREDNISONE [Concomitant]
     Dosage: 5 MG, DAILY
  13. TYLENOL [Concomitant]
  14. FLEXERIL [Concomitant]
  15. PERIACTIN [Concomitant]
  16. VALIUM [Concomitant]
  17. PERCOCET [Concomitant]
  18. LABETALOL [Concomitant]
     Dosage: 200 MG, BID
  19. AMLODIPINE [Concomitant]
     Dosage: 5 MG, DAILY

REACTIONS (32)
  - Haematochezia [Unknown]
  - Dizziness [Recovered/Resolved]
  - Dizziness postural [Recovered/Resolved]
  - Gastroenteritis viral [Unknown]
  - Diarrhoea [Recovered/Resolved]
  - Hypophagia [Unknown]
  - Faecal incontinence [Unknown]
  - Mucous stools [Unknown]
  - Decreased appetite [Unknown]
  - Retching [Unknown]
  - Dehydration [Unknown]
  - Nausea [Recovered/Resolved]
  - Vomiting [Unknown]
  - Fall [Unknown]
  - Hypovolaemia [Unknown]
  - Hypersthenuria [Unknown]
  - Micturition frequency decreased [Unknown]
  - Metabolic acidosis [Unknown]
  - Adrenal insufficiency [Unknown]
  - Bundle branch block left [Unknown]
  - Presyncope [Recovering/Resolving]
  - Renal failure acute [Recovering/Resolving]
  - Sinus tachycardia [Unknown]
  - Heart rate increased [Unknown]
  - Palpitations [Unknown]
  - Kidney transplant rejection [Unknown]
  - Back disorder [Unknown]
  - Back pain [Recovering/Resolving]
  - Influenza [Recovered/Resolved]
  - Pyrexia [Recovered/Resolved]
  - Abdominal pain lower [Recovering/Resolving]
  - Blood pressure systolic increased [Recovering/Resolving]
